FAERS Safety Report 8975065 (Version 1)
Quarter: 2012Q4

REPORT INFORMATION
  Report Type: 
  Country: JP (occurrence: JP)
  Receive Date: 20121219
  Receipt Date: 20121219
  Transmission Date: 20130627
  Serious: Yes (Congenital Anomaly, Other)
  Sender: FDA-Public Use
  Company Number: PHHY2012JP115193

PATIENT

DRUGS (1)
  1. TEGRETOL [Suspect]
     Route: 064

REACTIONS (4)
  - Low birth weight baby [Unknown]
  - Hearing impaired [Unknown]
  - Speech disorder developmental [Unknown]
  - Foetal exposure during pregnancy [Unknown]
